FAERS Safety Report 5078821-4 (Version None)
Quarter: 2006Q3

REPORT INFORMATION
  Report Type: 
  Country: None (occurrence: None)
  Receive Date: 20060809
  Receipt Date: 20060731
  Transmission Date: 20061208
  Serious: Yes (Other)
  Sender: FDA-Public Use
  Company Number: 200612068BCC

PATIENT
  Age: 83 Year
  Sex: Female

DRUGS (6)
  1. LOW DOSE 81 MG BAYER ENTERIC ASPIRIN (ACETYLSALICYLIC ACID) [Suspect]
     Indication: ISCHAEMIC HEART DISEASE PROPHYLAXIS
     Dosage: 81 MD, QD, ORAL
     Route: 048
  2. LOW DOSE 81 MG BAYER ENTERIC ASPIRIN (ACETYLSALICYLIC ACID) [Suspect]
     Dosage: 325 MG, QD, ORAL
     Route: 048
  3. PRAVACHOL [Concomitant]
  4. PEPCID [Concomitant]
  5. DIOVAN [Concomitant]
  6. HYDROCHLOROTHIAZIDE [Concomitant]

REACTIONS (3)
  - BLOOD PRESSURE SYSTOLIC INCREASED [None]
  - CORONARY ARTERY OCCLUSION [None]
  - FATIGUE [None]
